FAERS Safety Report 21119177 (Version 1)
Quarter: 2022Q3

REPORT INFORMATION
  Report Type: Spontaneous
  Country: US (occurrence: None)
  Receive Date: 20220721
  Receipt Date: 20220721
  Transmission Date: 20221027
  Serious: No
  Sender: FDA-Public Use
  Company Number: None

PATIENT
  Sex: Male

DRUGS (1)
  1. LENALIDOMIDE [Suspect]
     Active Substance: LENALIDOMIDE
     Indication: Chronic lymphocytic leukaemia
     Dosage: 15MG DAILY BY MOUTH?
     Route: 048
     Dates: start: 202206

REACTIONS (5)
  - Night sweats [None]
  - Arthralgia [None]
  - Headache [None]
  - Asthenia [None]
  - Weight decreased [None]
